FAERS Safety Report 23441677 (Version 1)
Quarter: 2024Q1

REPORT INFORMATION
  Report Type: Spontaneous
  Country: US (occurrence: None)
  Receive Date: 20240125
  Receipt Date: 20240125
  Transmission Date: 20240410
  Serious: No
  Sender: FDA-Public Use
  Company Number: 2024A017316

PATIENT
  Sex: Female

DRUGS (1)
  1. BEYFORTUS [Suspect]
     Active Substance: NIRSEVIMAB-ALIP
     Dosage: UNK

REACTIONS (3)
  - Injury associated with device [Unknown]
  - Syringe issue [Unknown]
  - Occupational exposure to product [Unknown]
